FAERS Safety Report 6102602-3 (Version None)
Quarter: 2009Q1

REPORT INFORMATION
  Report Type: 
  Country: None (occurrence: None)
  Receive Date: 20090304
  Receipt Date: 20080930
  Transmission Date: 20090719
  Serious: No
  Sender: FDA-Public Use
  Company Number: A0749875A

PATIENT
  Age: 75 Year
  Sex: Male

DRUGS (6)
  1. REQUIP XL [Suspect]
     Indication: PARKINSON'S DISEASE
     Dosage: 2MG AT NIGHT
     Route: 048
     Dates: start: 20080927
  2. CARBIDOPA AND LEVODOPA [Concomitant]
  3. OMEPRAZOLE [Concomitant]
  4. OXYBUTYNIN CHLORIDE [Concomitant]
  5. DOXYCYCLINE [Concomitant]
  6. ADVIL [Concomitant]
     Indication: PAIN

REACTIONS (5)
  - ASTHENIA [None]
  - DRUG EFFECT DECREASED [None]
  - FEELING ABNORMAL [None]
  - MALAISE [None]
  - MOVEMENT DISORDER [None]
